FAERS Safety Report 10153260 (Version 1)
Quarter: 2014Q2

REPORT INFORMATION
  Report Type: Spontaneous
  Country: US (occurrence: US)
  Receive Date: 20140505
  Receipt Date: 20140505
  Transmission Date: 20141212
  Serious: Yes (Other)
  Sender: FDA-Public Use
  Company Number: US-BAYER-2014-062718

PATIENT
  Sex: Female

DRUGS (6)
  1. BAYER GENUINE ASPIRIN ORIGINAL STRENGTH [Suspect]
  2. LYRICA [Concomitant]
     Indication: NEURALGIA
  3. CALCIUM CARBONATE [Concomitant]
  4. HYDROXYZINE [Concomitant]
  5. ZANTAC [Concomitant]
  6. MUCINEX [Concomitant]

REACTIONS (2)
  - Drug hypersensitivity [None]
  - Angioedema [None]
